FAERS Safety Report 25651152 (Version 3)
Quarter: 2025Q4

REPORT INFORMATION
  Report Type: Spontaneous
  Country: JP (occurrence: JP)
  Receive Date: 20250806
  Receipt Date: 20251020
  Transmission Date: 20260119
  Serious: Yes (Hospitalization, Other)
  Sender: PFIZER
  Company Number: JP-PFIZER INC-202500133307

PATIENT
  Sex: Female
  Weight: 43 kg

DRUGS (8)
  1. ELREXFIO [Suspect]
     Active Substance: ELRANATAMAB-BCMM
     Indication: Plasma cell myeloma
     Dosage: 12 MG, SINGLE (DAY1)
     Route: 058
     Dates: start: 20250220, end: 20250220
  2. ELREXFIO [Suspect]
     Active Substance: ELRANATAMAB-BCMM
     Dosage: 32 MG, SINGLE (DAY4)
     Route: 058
     Dates: start: 20250225, end: 20250225
  3. ELREXFIO [Suspect]
     Active Substance: ELRANATAMAB-BCMM
     Dosage: 76 MG, SINGLE
     Route: 058
     Dates: start: 20250301, end: 20250301
  4. ELREXFIO [Suspect]
     Active Substance: ELRANATAMAB-BCMM
     Dosage: 76 MG, SINGLE
     Route: 058
     Dates: start: 20250310, end: 20250310
  5. DEXAMETHASONE SODIUM PHOSPHATE [Concomitant]
     Active Substance: DEXAMETHASONE SODIUM PHOSPHATE
     Indication: General physical health deterioration
     Dosage: 3.3 MG
     Dates: start: 20250325, end: 20250328
  6. BETAMETHASONE [Concomitant]
     Active Substance: BETAMETHASONE
     Indication: Increased appetite
     Dosage: 3.3 MG
     Dates: start: 20250328, end: 20250329
  7. BETAMETHASONE [Concomitant]
     Active Substance: BETAMETHASONE
     Indication: Plasma cell myeloma
     Dosage: 1.5 MG
     Dates: start: 20250401, end: 20250402
  8. BETAMETHASONE [Concomitant]
     Active Substance: BETAMETHASONE
     Dosage: 1.0 MG
     Dates: start: 20250403, end: 20250404

REACTIONS (4)
  - Cytomegalovirus enterocolitis [Not Recovered/Not Resolved]
  - Cytokine release syndrome [Recovered/Resolved]
  - Plasma cell myeloma [Unknown]
  - Malignant neoplasm progression [Unknown]

NARRATIVE: CASE EVENT DATE: 20250221
